FAERS Safety Report 17829760 (Version 2)
Quarter: 2020Q3

REPORT INFORMATION
  Report Type: Report from Study
  Country: ZA (occurrence: ZA)
  Receive Date: 20200527
  Receipt Date: 20200915
  Transmission Date: 20201102
  Serious: Yes (Other)
  Sender: FDA-Public Use
  Company Number: ZA-JNJFOC-20200529243

PATIENT
  Age: 39 Year
  Sex: Female
  Weight: 38 kg

DRUGS (12)
  1. BEDAQUILINE [Suspect]
     Active Substance: BEDAQUILINE
     Indication: PULMONARY TUBERCULOSIS
     Dosage: TILL WEEK 8
     Route: 048
     Dates: start: 20200115
  2. BEDAQUILINE [Suspect]
     Active Substance: BEDAQUILINE
     Route: 048
     Dates: start: 20200522, end: 20200714
  3. PRETOMANID [Suspect]
     Active Substance: PRETOMANID
     Indication: PULMONARY TUBERCULOSIS
     Route: 048
     Dates: start: 20200115, end: 20200514
  4. PYRAZINAMIDE. [Suspect]
     Active Substance: PYRAZINAMIDE
     Indication: PULMONARY TUBERCULOSIS
     Route: 048
     Dates: start: 20200115, end: 20200514
  5. BEDAQUILINE [Suspect]
     Active Substance: BEDAQUILINE
     Dosage: FROM WEEK 9
     Route: 048
     Dates: end: 20200514
  6. MOXIFLOXACIN. [Suspect]
     Active Substance: MOXIFLOXACIN
     Indication: PULMONARY TUBERCULOSIS
     Route: 048
     Dates: start: 20200115, end: 20200514
  7. EMTRICITABINE + TENOFOVIR DISOPROXIL FUMARATE [Concomitant]
     Active Substance: EMTRICITABINE\TENOFOVIR DISOPROXIL FUMARATE
     Indication: HIV INFECTION
     Route: 048
     Dates: start: 20200106
  8. RILPIVIRINE [Concomitant]
     Active Substance: RILPIVIRINE
     Indication: RETROVIRAL INFECTION
     Route: 048
     Dates: start: 20200106
  9. MOXIFLOXACIN. [Suspect]
     Active Substance: MOXIFLOXACIN
     Route: 048
     Dates: start: 20200522, end: 20200714
  10. PRETOMANID [Suspect]
     Active Substance: PRETOMANID
     Route: 048
     Dates: start: 20200522, end: 20200714
  11. PYRAZINAMIDE. [Suspect]
     Active Substance: PYRAZINAMIDE
     Route: 048
     Dates: start: 20200522, end: 20200714
  12. SPERSALLERG [Concomitant]
     Indication: CONJUNCTIVITIS
     Route: 061
     Dates: start: 20200331

REACTIONS (1)
  - Transaminases increased [Recovered/Resolved]

NARRATIVE: CASE EVENT DATE: 20200513
